FAERS Safety Report 22356837 (Version 1)
Quarter: 2023Q2

REPORT INFORMATION
  Report Type: Spontaneous
  Country: None (occurrence: US)
  Receive Date: 20230523
  Receipt Date: 20230523
  Transmission Date: 20230722
  Serious: No
  Sender: FDA-Public Use
  Company Number: US-Akorn Operating Company, LLC-2141927

PATIENT
  Sex: Male

DRUGS (1)
  1. KETOROLAC TROMETHAMINE [Suspect]
     Active Substance: KETOROLAC TROMETHAMINE

REACTIONS (1)
  - Pruritus [Unknown]
